FAERS Safety Report 20603794 (Version 1)
Quarter: 2022Q1

REPORT INFORMATION
  Report Type: Spontaneous
  Country: US (occurrence: US)
  Receive Date: 20220316
  Receipt Date: 20220316
  Transmission Date: 20220424
  Serious: No
  Sender: FDA-Public Use
  Company Number: US-JNJFOC-20220255783

PATIENT
  Sex: Female

DRUGS (1)
  1. WOMENS ROGAINE [Suspect]
     Active Substance: MINOXIDIL
     Indication: Alopecia
     Dosage: DOSE: DROPPER FULL AND PUT ON AFFECTED AREA THINK TWICE A DAY WHEN FIRST STARTED
     Route: 061

REACTIONS (3)
  - Adverse event [Recovered/Resolved]
  - Alopecia [Recovered/Resolved]
  - Product use in unapproved indication [Unknown]
